FAERS Safety Report 10008619 (Version 1)
Quarter: 2014Q1

REPORT INFORMATION
  Report Type: Other
  Country: CN (occurrence: CN)
  Receive Date: 20140313
  Receipt Date: 20140313
  Transmission Date: 20141002
  Serious: Yes (Hospitalization)
  Sender: FDA-Public Use
  Company Number: CN-BRISTOL-MYERS SQUIBB COMPANY-20469003

PATIENT
  Age: 58 Year
  Sex: Male

DRUGS (4)
  1. METFORMIN HCL [Suspect]
     Indication: DIABETES MELLITUS
  2. NOVORAPID [Suspect]
     Indication: DIABETES MELLITUS
     Dosage: 1DF: 16U MORNING, 14U AFTERNOON, 14U EVENING, 30U BEFORE BED
  3. PIOGLITAZONE HCL [Suspect]
     Indication: DIABETES MELLITUS
     Route: 048
  4. INSULIN GLARGINE [Suspect]
     Indication: DIABETES MELLITUS
     Dosage: 1DF: 30U,DOSE DECREASED FROM 75U TO 66U.

REACTIONS (2)
  - Diabetic neuropathy [Recovered/Resolved]
  - Demyelination [Recovered/Resolved]
